FAERS Safety Report 5691243-8 (Version None)
Quarter: 2008Q2

REPORT INFORMATION
  Report Type: 
  Country: None (occurrence: None)
  Receive Date: 20080402
  Receipt Date: 20080205
  Transmission Date: 20081010
  Serious: No
  Sender: FDA-Public Use
  Company Number: US-BAYER-200813450NA

PATIENT
  Age: 22 Year
  Sex: Female
  Weight: 111 kg

DRUGS (2)
  1. MIRENA [Suspect]
     Indication: CONTRACEPTION
     Route: 015
     Dates: start: 20080117, end: 20080205
  2. LEVSIN [Concomitant]
     Indication: GALLBLADDER DISORDER
     Dates: start: 20080122

REACTIONS (1)
  - INTRA-UTERINE CONTRACEPTIVE DEVICE EXPELLED [None]
